FAERS Safety Report 25518598 (Version 1)
Quarter: 2025Q3

REPORT INFORMATION
  Report Type: Spontaneous
  Country: VN (occurrence: VN)
  Receive Date: 20250704
  Receipt Date: 20250704
  Transmission Date: 20251020
  Serious: Yes (Hospitalization, Other)
  Sender: BAXTER
  Company Number: VN-BAXTER-2025BAX017394

PATIENT
  Age: 4 Year
  Sex: Female
  Weight: 20 kg

DRUGS (4)
  1. SEVOFLURANE [Suspect]
     Active Substance: SEVOFLURANE
     Indication: Anaesthesia
     Route: 065
  2. PROPOFOL [Suspect]
     Active Substance: PROPOFOL
     Indication: General anaesthesia
     Route: 065
  3. FENTANYL [Suspect]
     Active Substance: FENTANYL
     Indication: General anaesthesia
     Route: 065
  4. ROCURONIUM [Suspect]
     Active Substance: ROCURONIUM BROMIDE
     Indication: General anaesthesia
     Route: 065

REACTIONS (7)
  - Rhabdomyolysis [Recovered/Resolved]
  - Hyperthermia malignant [Recovered/Resolved]
  - Tachycardia [Recovered/Resolved]
  - End-tidal CO2 increased [Recovered/Resolved]
  - Body temperature increased [Recovered/Resolved]
  - Muscle rigidity [Recovered/Resolved]
  - Trismus [Recovered/Resolved]
